FAERS Safety Report 18266126 (Version 1)
Quarter: 2020Q3

REPORT INFORMATION
  Report Type: Spontaneous
  Country: CA (occurrence: CA)
  Receive Date: 20200915
  Receipt Date: 20200915
  Transmission Date: 20201103
  Serious: Yes (Other)
  Sender: FDA-Public Use
  Company Number: CA-TEVA-2020-CA-1827284

PATIENT
  Age: 87 Year
  Sex: Male

DRUGS (1)
  1. TEVA?DOXYCYCLINE [Suspect]
     Active Substance: DOXYCYCLINE
     Indication: BACTERIAL INFECTION
     Dosage: 200 MILLIGRAM DAILY;
     Route: 048

REACTIONS (1)
  - Hallucination [Unknown]
